FAERS Safety Report 11147828 (Version 2)
Quarter: 2015Q2

REPORT INFORMATION
  Report Type: Spontaneous
  Country: US (occurrence: US)
  Receive Date: 20150529
  Receipt Date: 20150616
  Transmission Date: 20150821
  Serious: No
  Sender: FDA-Public Use
  Company Number: US-BAYER-2015-258515

PATIENT
  Age: 18 Year
  Sex: Female

DRUGS (1)
  1. BEYAZ [Suspect]
     Active Substance: DROSPIRENONE\ETHINYL ESTRADIOL\LEVOMEFOLATE CALCIUM
     Indication: DYSMENORRHOEA
     Dosage: UNK
     Route: 048
     Dates: start: 201504

REACTIONS (2)
  - Product use issue [None]
  - Libido decreased [None]

NARRATIVE: CASE EVENT DATE: 201505
